FAERS Safety Report 13262698 (Version 1)
Quarter: 2017Q1

REPORT INFORMATION
  Report Type: Spontaneous
  Country: ES (occurrence: ES)
  Receive Date: 20170223
  Receipt Date: 20170223
  Transmission Date: 20170428
  Serious: Yes (Hospitalization, Other)
  Sender: FDA-Public Use
  Company Number: ES-BAUSCH-BL-2017-004556

PATIENT
  Age: 75 Year
  Sex: Male

DRUGS (2)
  1. RIBAVIRIN. [Suspect]
     Active Substance: RIBAVIRIN
     Indication: ANTIVIRAL TREATMENT
     Route: 065
  2. OMBITASVIR/PARITAPREVIR/RITONAVIR/DASABUVIR [Concomitant]
     Active Substance: DASABUVIR\OMBITASVIR\PARITAPREVIR\RITONAVIR
     Indication: ANTIVIRAL TREATMENT

REACTIONS (2)
  - Hyperbilirubinaemia [Recovered/Resolved]
  - Pancreatitis acute [Recovered/Resolved]
